FAERS Safety Report 15552226 (Version 2)
Quarter: 2019Q1

REPORT INFORMATION
  Report Type: Report from Study
  Country: CA (occurrence: CA)
  Receive Date: 20181025
  Receipt Date: 20190219
  Transmission Date: 20190417
  Serious: Yes (Hospitalization, Other)
  Sender: FDA-Public Use
  Company Number: CA-JNJFOC-20180810817

PATIENT
  Age: 21 Year
  Sex: Female
  Weight: 60 kg

DRUGS (1)
  1. REMICADE [Suspect]
     Active Substance: INFLIXIMAB
     Indication: CROHN^S DISEASE
     Route: 042
     Dates: start: 20180725

REACTIONS (8)
  - Hospitalisation [Unknown]
  - Dyspnoea [Unknown]
  - Infusion related reaction [Unknown]
  - Fistula [Unknown]
  - Abscess [Unknown]
  - Crohn^s disease [Unknown]
  - Wound [Recovering/Resolving]
  - Proctocolectomy [Recovering/Resolving]

NARRATIVE: CASE EVENT DATE: 2018
